FAERS Safety Report 24942645 (Version 1)
Quarter: 2025Q1

REPORT INFORMATION
  Report Type: Spontaneous
  Country: US (occurrence: US)
  Receive Date: 20250207
  Receipt Date: 20250207
  Transmission Date: 20250408
  Serious: No
  Sender: SANOFI AVENTIS
  Company Number: US-SA-2025SA037925

PATIENT
  Age: 66 Year
  Sex: Female
  Weight: 77.27 kg

DRUGS (22)
  1. DUPIXENT [Suspect]
     Active Substance: DUPILUMAB
     Indication: Dermatitis atopic
     Dosage: 300 MG, QOW
     Route: 058
  2. ONDANSETRON [Concomitant]
     Active Substance: ONDANSETRON
  3. CELECOXIB [Concomitant]
     Active Substance: CELECOXIB
  4. ZENATANE [Concomitant]
     Active Substance: ISOTRETINOIN
  5. CYCLOBENZAPRINE [Concomitant]
     Active Substance: CYCLOBENZAPRINE
  6. CLOBETASOL PROPIONATE [Concomitant]
     Active Substance: CLOBETASOL PROPIONATE
  7. XARELTO [Concomitant]
     Active Substance: RIVAROXABAN
  8. METOPROLOL TARTRATE [Concomitant]
     Active Substance: METOPROLOL TARTRATE
  9. DICLOFENAC SODIUM [Concomitant]
     Active Substance: DICLOFENAC SODIUM
  10. LOSARTAN POTASSIUM [Concomitant]
     Active Substance: LOSARTAN POTASSIUM
  11. PANTOPRAZOLE SODIUM [Concomitant]
     Active Substance: PANTOPRAZOLE SODIUM
  12. MONTELUKAST SODIUM [Concomitant]
     Active Substance: MONTELUKAST SODIUM
  13. ALPRAZOLAM [Concomitant]
     Active Substance: ALPRAZOLAM
  14. HYDROXYZINE [Concomitant]
     Active Substance: HYDROXYZINE HYDROCHLORIDE
  15. FLUTICASONE PROPIONATE [Concomitant]
     Active Substance: FLUTICASONE PROPIONATE
  16. GABAPENTIN [Concomitant]
     Active Substance: GABAPENTIN
  17. DULOXETINE [Concomitant]
     Active Substance: DULOXETINE
  18. BISOPROLOL FUMARATE [Concomitant]
     Active Substance: BISOPROLOL FUMARATE
  19. BYDUREON BCISE [Concomitant]
     Active Substance: EXENATIDE
  20. HYDROXYCHLOROQUINE [Concomitant]
     Active Substance: HYDROXYCHLOROQUINE
  21. COLCHICINE [Concomitant]
     Active Substance: COLCHICINE
  22. ATORVASTATIN CALCIUM [Concomitant]
     Active Substance: ATORVASTATIN CALCIUM

REACTIONS (5)
  - Illness [Unknown]
  - Discomfort [Unknown]
  - Head discomfort [Unknown]
  - Insomnia [Unknown]
  - Pruritus [Unknown]
